FAERS Safety Report 7525941-8 (Version None)
Quarter: 2011Q2

REPORT INFORMATION
  Report Type: 
  Country: None (occurrence: None)
  Receive Date: 20110603
  Receipt Date: 20110603
  Transmission Date: 20111010
  Serious: Yes (Other)
  Sender: FDA-Public Use
  Company Number: None

PATIENT
  Sex: Female
  Weight: 7.4844 kg

DRUGS (3)
  1. NEOMYCIN [Suspect]
  2. DEXAMETHASONE [Suspect]
     Indication: CATARACT OPERATION
     Dosage: OPTH
     Route: 047
  3. POLYMYXIN [Suspect]

REACTIONS (1)
  - DRUG HYPERSENSITIVITY [None]
